FAERS Safety Report 9900130 (Version 2)
Quarter: 2014Q1

REPORT INFORMATION
  Report Type: Report from Study
  Country: DE (occurrence: CO)
  Receive Date: 20140214
  Receipt Date: 20140314
  Transmission Date: 20141002
  Serious: Yes (Hospitalization, Other)
  Sender: FDA-Public Use
  Company Number: DE-ACTELION-A-NJ2014-95033

PATIENT
  Age: 24 Year
  Sex: Female

DRUGS (1)
  1. VENTAVIS [Suspect]
     Indication: PULMONARY HYPERTENSION
     Dosage: UNK
     Route: 055
     Dates: start: 20110121

REACTIONS (5)
  - Pulmonary oedema [Unknown]
  - Ecchymosis [Unknown]
  - Ear pain [Unknown]
  - Migraine [Unknown]
  - Hypotension [Unknown]
